FAERS Safety Report 9512302 (Version 1)
Quarter: 2013Q3

REPORT INFORMATION
  Report Type: Spontaneous
  Country: US (occurrence: US)
  Receive Date: 20130910
  Receipt Date: 20130910
  Transmission Date: 20140515
  Serious: Yes (Other)
  Sender: FDA-Public Use
  Company Number: -SAAVPROD-BMS16932717

PATIENT
  Age: 62 Year
  Sex: Female

DRUGS (1)
  1. IRBESARTAN [Suspect]
     Indication: BLOOD PRESSURE
     Dates: start: 20120801, end: 20120803

REACTIONS (3)
  - Blood pressure increased [Recovered/Resolved]
  - Malaise [Recovered/Resolved]
  - Headache [Recovered/Resolved]
